FAERS Safety Report 24937151 (Version 1)
Quarter: 2025Q1

REPORT INFORMATION
  Report Type: Spontaneous
  Country: US (occurrence: US)
  Receive Date: 20250206
  Receipt Date: 20250206
  Transmission Date: 20250408
  Serious: Yes (Hospitalization, Other)
  Sender: Kenvue
  Company Number: US-KENVUE-20250111572

PATIENT
  Age: 26 Year
  Sex: Male

DRUGS (1)
  1. TYLENOL PM EXTRA STRENGTH [Suspect]
     Active Substance: ACETAMINOPHEN\DIPHENHYDRAMINE HYDROCHLORIDE
     Indication: Sleep disorder therapy
     Route: 065
     Dates: start: 20250127, end: 20250127

REACTIONS (2)
  - Hallucination [Recovering/Resolving]
  - Drug hypersensitivity [Recovering/Resolving]

NARRATIVE: CASE EVENT DATE: 20250128
